FAERS Safety Report 7790793-8 (Version None)
Quarter: 2011Q3

REPORT INFORMATION
  Report Type: 
  Country: None (occurrence: None)
  Receive Date: 20110930
  Receipt Date: 20110923
  Transmission Date: 20111222
  Serious: Yes (Other)
  Sender: FDA-Public Use
  Company Number: US-ASTRAZENECA-2011SE57382

PATIENT
  Age: 68 Year
  Sex: Male
  Weight: 98.9 kg

DRUGS (3)
  1. ATENOLOL [Concomitant]
     Route: 048
  2. CRESTOR [Suspect]
     Route: 048
  3. OMEPRAZOLE [Concomitant]
     Route: 048

REACTIONS (5)
  - ABDOMINAL PAIN [None]
  - FREQUENT BOWEL MOVEMENTS [None]
  - HAEMATOCHEZIA [None]
  - ABDOMINAL DISCOMFORT [None]
  - VOMITING [None]
